FAERS Safety Report 24154290 (Version 1)
Quarter: 2024Q3

REPORT INFORMATION
  Report Type: Spontaneous
  Country: US (occurrence: US)
  Receive Date: 20240730
  Receipt Date: 20240730
  Transmission Date: 20241017
  Serious: No
  Sender: ELI LILLY AND CO
  Company Number: US-ELI_LILLY_AND_COMPANY-US202407019474

PATIENT
  Sex: Male

DRUGS (1)
  1. STRATTERA [Suspect]
     Active Substance: ATOMOXETINE HYDROCHLORIDE
     Indication: Craniocerebral injury
     Dosage: UNK UNK, UNKNOWN
     Route: 065

REACTIONS (2)
  - Drug screen false positive [Unknown]
  - Off label use [Unknown]
